FAERS Safety Report 8828706 (Version 2)
Quarter: 2012Q4

REPORT INFORMATION
  Report Type: 
  Country: US (occurrence: US)
  Receive Date: 20121008
  Receipt Date: 20121123
  Transmission Date: 20130627
  Serious: Yes (Other)
  Sender: FDA-Public Use
  Company Number: US-PFIZER INC-2012247750

PATIENT
  Age: 54 Year
  Sex: Female
  Weight: 77.1 kg

DRUGS (1)
  1. CELEBREX [Suspect]
     Indication: PAIN
     Dosage: 200 mg, 1x/day
     Route: 048
     Dates: start: 20121001, end: 20121005

REACTIONS (3)
  - Petechiae [Not Recovered/Not Resolved]
  - Blood pressure increased [Unknown]
  - Scratch [Not Recovered/Not Resolved]
